FAERS Safety Report 7549155 (Version 2)
Quarter: 2012Q4

REPORT INFORMATION
  Report Type: Report from Study
  Country: BE (occurrence: BE)
  Receive Date: 20100820
  Receipt Date: 20121211
  Transmission Date: 20130627
  Serious: Yes (Hospitalization)
  Sender: FDA-Public Use
  Company Number: PHHO2010BE11929

PATIENT
  Age: 3 Year
  Sex: Female
  Weight: 12 kg

DRUGS (2)
  1. NO TREATMENT RECEIVED [Suspect]
     Indication: JUVENILE ARTHRITIS
     Dosage: NO TREATMENT
  2. ACZ885 [Suspect]
     Indication: JUVENILE ARTHRITIS
     Dosage: UNK
     Dates: start: 20100419

REACTIONS (1)
  - Gastrointestinal infection [Recovered/Resolved]
